FAERS Safety Report 18394789 (Version 5)
Quarter: 2022Q2

REPORT INFORMATION
  Report Type: Spontaneous
  Country: US (occurrence: US)
  Receive Date: 20201016
  Receipt Date: 20220506
  Transmission Date: 20220720
  Serious: No
  Sender: FDA-Public Use
  Company Number: US-PFIZER INC-2020395463

PATIENT
  Age: 61 Year
  Sex: Female
  Weight: 81.65 kg

DRUGS (6)
  1. LYRICA [Suspect]
     Active Substance: PREGABALIN
     Indication: Neuropathy peripheral
     Dosage: 400 MG [200MG,TWO CAPSULES AT A TIME]
     Route: 048
     Dates: end: 20201018
  2. LYRICA [Suspect]
     Active Substance: PREGABALIN
     Indication: Pain in extremity
     Dosage: 100 MG
     Route: 048
     Dates: start: 2019
  3. LYRICA [Suspect]
     Active Substance: PREGABALIN
     Indication: Neuralgia
     Dosage: 800 MG, DAILY (200MG, 1 TAB PO IN AM, 1 TAB PO IN PM AND 2 TAB PO HS)
     Route: 048
  4. LYRICA [Suspect]
     Active Substance: PREGABALIN
     Dosage: 100 MG, 4X/DAY
     Route: 048
  5. PROPANOL (PROPRANOLOL HYDROCHLORIDE) [Concomitant]
     Active Substance: PROPRANOLOL HYDROCHLORIDE
     Indication: Cardiac disorder
     Dosage: 20 MG, 1X/DAY [ONCE NIGHTLY]
  6. LORAZEPAM [Concomitant]
     Active Substance: LORAZEPAM
     Indication: Sleep disorder
     Dosage: 0.5 MG, 1X/DAY [NIGHTLY]
     Dates: start: 2015

REACTIONS (8)
  - Therapeutic product effect incomplete [Unknown]
  - Prescribed overdose [Unknown]
  - Intentional dose omission [Unknown]
  - Impaired driving ability [Unknown]
  - Disturbance in attention [Unknown]
  - Confusional state [Unknown]
  - Feeling abnormal [Unknown]
  - Speech disorder [Unknown]
